FAERS Safety Report 5520857-0 (Version None)
Quarter: 2007Q4

REPORT INFORMATION
  Report Type: 
  Country: None (occurrence: None)
  Receive Date: 20071119
  Receipt Date: 20071108
  Transmission Date: 20080405
  Serious: Yes (Other)
  Sender: FDA-Public Use
  Company Number: B0491031A

PATIENT
  Age: 39 Year
  Sex: Female
  Weight: 55 kg

DRUGS (3)
  1. DEROXAT [Suspect]
     Indication: DEPRESSION
     Route: 048
     Dates: start: 20070906, end: 20071001
  2. RISPERDAL [Suspect]
     Indication: PHOBIA
     Dates: start: 20070906, end: 20071001
  3. LYSANXIA [Concomitant]
     Dosage: 10MG PER DAY
     Dates: start: 20070906, end: 20070920

REACTIONS (5)
  - BLADDER DISORDER [None]
  - CONSTIPATION [None]
  - HAEMORRHOIDS [None]
  - URINARY RETENTION [None]
  - URINE OUTPUT DECREASED [None]
